FAERS Safety Report 4490846-6 (Version None)
Quarter: 2004Q4

REPORT INFORMATION
  Report Type: 
  Country: None (occurrence: None)
  Receive Date: 20041027
  Receipt Date: 20041019
  Transmission Date: 20050328
  Serious: Yes (Hospitalization)
  Sender: FDA-Public Use
  Company Number: MK200410-0244-1

PATIENT
  Age: 53 Year
  Sex: Female

DRUGS (12)
  1. ANAFRANIL [Suspect]
     Dosage: 37.5MG, DAILY
     Dates: start: 20021230, end: 20030216
  2. LUDIOMIL [Suspect]
     Dosage: 150 MG DAILY
     Dates: start: 20021112, end: 20030216
  3. TAXILAN [Suspect]
     Dosage: 100-150MG DAILY
     Dates: start: 20030101, end: 20030217
  4. PANTOZOL [Suspect]
     Dosage: 20-4- MG DAILY
     Dates: start: 20041204, end: 20030217
  5. ACETYLCYSTEINE [Concomitant]
  6. KLIOGEST [Concomitant]
  7. ACETAMINOPHEN [Concomitant]
  8. TAVOR [Concomitant]
  9. VENLAFAXINE HCL [Concomitant]
  10. TRUXAL [Concomitant]
  11. SUCRALFATE [Concomitant]
  12. ZYPREXA [Concomitant]

REACTIONS (1)
  - HEPATITIS ACUTE [None]
